FAERS Safety Report 9171972 (Version 4)
Quarter: 2013Q2

REPORT INFORMATION
  Report Type: Spontaneous
  Country: DE (occurrence: CH)
  Receive Date: 20130319
  Receipt Date: 20130605
  Transmission Date: 20140414
  Serious: Yes (Death, Other)
  Sender: FDA-Public Use
  Company Number: CH-FRI-1000043511

PATIENT
  Age: 65 Year
  Sex: Male
  Weight: 99 kg

DRUGS (15)
  1. ROFLUMILAST [Suspect]
     Indication: CHRONIC OBSTRUCTIVE PULMONARY DISEASE
     Dosage: 250 MCG
     Route: 048
     Dates: start: 20121113, end: 20121223
  2. ROFLUMILAST [Suspect]
     Dosage: 250 MCG
     Route: 048
     Dates: start: 20130214, end: 20130416
  3. INHALED CORTICOSTEROIDS [Concomitant]
     Route: 055
  4. LONG-ACTING MUSCARINIC ANTAGONIST [Concomitant]
  5. LONG-ACTING BETA AGONIST [Concomitant]
  6. OXYGEN [Concomitant]
  7. ESOMEP [Concomitant]
     Dosage: 40 MG
  8. REMERON [Concomitant]
     Dosage: 0.25 DF
  9. SEROQUEL [Concomitant]
     Dosage: 0.25 DF
  10. COSAAR [Concomitant]
     Dosage: 50 MG
  11. CALCIMAGON D3 FORTE [Concomitant]
  12. TOREM [Concomitant]
     Dosage: 10 MG
  13. CONCOR [Concomitant]
     Dosage: 10 MG
  14. SPIRIVA [Concomitant]
     Dosage: 18 MCG
  15. SYMBICORT [Concomitant]
     Dosage: 800/24

REACTIONS (4)
  - Chronic obstructive pulmonary disease [Fatal]
  - Ventricular tachycardia [Unknown]
  - Diarrhoea [Unknown]
  - Medication error [Unknown]
